FAERS Safety Report 15949161 (Version 2)
Quarter: 2019Q1

REPORT INFORMATION
  Report Type: Spontaneous
  Country: KR (occurrence: KR)
  Receive Date: 20190211
  Receipt Date: 20190226
  Transmission Date: 20190417
  Serious: Yes (Death, Other)
  Sender: FDA-Public Use
  Company Number: KR-009507513-1902KOR003449

PATIENT
  Sex: Female

DRUGS (8)
  1. ERDOS [Concomitant]
     Active Substance: ERDOSTEINE
     Dosage: QUANTITY 3, DAYS 21
     Route: 048
     Dates: start: 20181218
  2. KEYTRUDA [Suspect]
     Active Substance: PEMBROLIZUMAB
     Dosage: QUANTITY 1 (UNIT NOT REPORTED), DAYS 1
     Dates: start: 20181218
  3. COUGH SYRUP (AMMONIUM CHLORIDE (+) CHLORPHENIRAMINE MALEATE (+) DEXTRO [Concomitant]
     Dosage: QUANTITY 3, DAYS 21
     Dates: start: 20181218
  4. HEPARIN SODIUM. [Concomitant]
     Active Substance: HEPARIN SODIUM
     Dosage: QUANTITY 3, DAYS 1
     Dates: start: 20181218
  5. CODEINE PHOSPHATE [Concomitant]
     Active Substance: CODEINE PHOSPHATE
     Dosage: QUANTITY 3, DAYS 21
     Route: 048
     Dates: start: 20181218
  6. SODIUM CHLORIDE. [Concomitant]
     Active Substance: SODIUM CHLORIDE
     Dosage: QUANTITY 4, DAYS 1
     Dates: start: 20181218
  7. GEMZAR [Concomitant]
     Active Substance: GEMCITABINE HYDROCHLORIDE
     Dosage: QUANTITY 1.2, DAYS 1
     Dates: start: 20181218
  8. SODIUM CHLORIDE. [Concomitant]
     Active Substance: SODIUM CHLORIDE
     Dosage: QUANTITY 1, DAYS 1
     Dates: start: 20181218

REACTIONS (1)
  - Cardio-respiratory arrest [Fatal]

NARRATIVE: CASE EVENT DATE: 20181221
